FAERS Safety Report 5404807-3 (Version None)
Quarter: 2007Q3

REPORT INFORMATION
  Report Type: 
  Country: None (occurrence: None)
  Receive Date: 20070803
  Receipt Date: 20070724
  Transmission Date: 20080115
  Serious: Yes (Other)
  Sender: FDA-Public Use
  Company Number: HQWYE218425JUL07

PATIENT
  Age: 72 Year
  Sex: Female

DRUGS (3)
  1. EFFEXOR [Suspect]
     Indication: INSOMNIA
     Dosage: UNKNOWN
     Dates: start: 20040601
  2. EFFEXOR [Suspect]
     Dosage: UNKNOWN
     Dates: end: 20050101
  3. AMIODARONE HCL [Concomitant]
     Indication: ATRIAL FIBRILLATION
     Dosage: UNKNOWN

REACTIONS (8)
  - ATRIAL FIBRILLATION [None]
  - BREAST CANCER [None]
  - CONDITION AGGRAVATED [None]
  - DRUG INEFFECTIVE [None]
  - FEELING ABNORMAL [None]
  - MEMORY IMPAIRMENT [None]
  - NIGHT SWEATS [None]
  - UNEVALUABLE EVENT [None]
